FAERS Safety Report 16564989 (Version 1)
Quarter: 2019Q3

REPORT INFORMATION
  Report Type: Spontaneous
  Country: US (occurrence: US)
  Receive Date: 20190711
  Receipt Date: 20190711
  Transmission Date: 20191004
  Serious: Yes (Other)
  Sender: FDA-Public Use
  Company Number: None

PATIENT
  Age: 58 Year
  Sex: Female

DRUGS (21)
  1. BLACH COHOSH [Concomitant]
     Dates: start: 20131126
  2. CITALOPRAM [Concomitant]
     Active Substance: CITALOPRAM HYDROBROMIDE
     Dates: start: 20131126
  3. FLUTICASONE. [Concomitant]
     Active Substance: FLUTICASONE
     Dates: start: 20190602
  4. ONDANSETRON [Concomitant]
     Active Substance: ONDANSETRON
     Dates: start: 20131126
  5. PROAIR HFA [Concomitant]
     Active Substance: ALBUTEROL SULFATE
     Dates: start: 20131126
  6. BUSPIRONE [Concomitant]
     Active Substance: BUSPIRONE HYDROCHLORIDE
     Dates: start: 20131126
  7. SUMATRIPTAN. [Concomitant]
     Active Substance: SUMATRIPTAN
     Dates: start: 20131126
  8. FLOVENT [Concomitant]
     Active Substance: FLUTICASONE PROPIONATE
     Dates: start: 20131126
  9. IMITREX [Concomitant]
     Active Substance: SUMATRIPTAN SUCCINATE
     Dates: start: 19000101
  10. RIBOFLAVIN [Concomitant]
     Active Substance: RIBOFLAVIN
     Dates: start: 20131126
  11. TOPAMAX [Concomitant]
     Active Substance: TOPIRAMATE
     Dates: start: 20180114
  12. VITAMIN D [Concomitant]
     Active Substance: VITAMIN D NOS
     Dates: start: 20150611
  13. LORATADINE. [Concomitant]
     Active Substance: LORATADINE
     Dates: start: 20131126
  14. RANITIADINE [Concomitant]
     Dates: start: 20190607
  15. RESTASIS [Concomitant]
     Active Substance: CYCLOSPORINE
     Dates: start: 20181024
  16. OMEPRAZOLE. [Concomitant]
     Active Substance: OMEPRAZOLE
     Dates: start: 20190426
  17. ENBREL [Suspect]
     Active Substance: ETANERCEPT
     Indication: PSORIATIC ARTHROPATHY
     Dosage: ?          OTHER FREQUENCY:ONCE A WEEK;?
     Route: 058
     Dates: start: 20150612
  18. QVAR [Concomitant]
     Active Substance: BECLOMETHASONE DIPROPIONATE
     Dates: start: 20150611
  19. TOPIRAMATE. [Concomitant]
     Active Substance: TOPIRAMATE
     Dates: start: 20190510
  20. CELECOXIB. [Concomitant]
     Active Substance: CELECOXIB
     Dates: start: 20190419
  21. MYRBETRIQ [Concomitant]
     Active Substance: MIRABEGRON
     Dates: start: 20150807

REACTIONS (1)
  - Chronic kidney disease [None]
